FAERS Safety Report 5663671-8 (Version None)
Quarter: 2008Q1

REPORT INFORMATION
  Report Type: 
  Country: None (occurrence: None)
  Receive Date: 20080307
  Receipt Date: 20080226
  Transmission Date: 20080703
  Serious: Yes (Other)
  Sender: FDA-Public Use
  Company Number: GXKR2008GB02056

PATIENT
  Sex: Female

DRUGS (2)
  1. WARFARIN (NGX)(WARFARIN) UNKNOWN, 1MG [Suspect]
     Indication: ARRHYTHMIA SUPRAVENTRICULAR
     Dosage: ORAL
     Route: 048
     Dates: start: 20051201
  2. CAMELLIA SINENSIS(CAMELLIA SINENSIS, TEA, GREEN) [Suspect]
     Indication: ARRHYTHMIA SUPRAVENTRICULAR
     Dates: start: 20080201

REACTIONS (2)
  - FOOD INTERACTION [None]
  - INTERNATIONAL NORMALISED RATIO INCREASED [None]
